FAERS Safety Report 12084135 (Version 1)
Quarter: 2016Q1

REPORT INFORMATION
  Report Type: Report from Study
  Country: TR (occurrence: TR)
  Receive Date: 20160217
  Receipt Date: 20160217
  Transmission Date: 20160526
  Serious: Yes (Death, Other)
  Sender: FDA-Public Use
  Company Number: TR-SA-2016SA027359

PATIENT
  Sex: Male
  Weight: 47 kg

DRUGS (1)
  1. CAMPATH [Suspect]
     Active Substance: ALEMTUZUMAB
     Indication: IMMUNOSUPPRESSION
     Route: 065
     Dates: start: 20160130, end: 20160130

REACTIONS (6)
  - Pulmonary oedema [Fatal]
  - Transplant dysfunction [Unknown]
  - Hypotension [Fatal]
  - Thrombocytopenia [Fatal]
  - Disease progression [Unknown]
  - Neutropenia [Fatal]

NARRATIVE: CASE EVENT DATE: 20160130
